FAERS Safety Report 17796147 (Version 2)
Quarter: 2020Q2

REPORT INFORMATION
  Report Type: Spontaneous
  Country: ID (occurrence: ID)
  Receive Date: 20200517
  Receipt Date: 20200529
  Transmission Date: 20200714
  Serious: Yes (Hospitalization)
  Sender: FDA-Public Use
  Company Number: NVSC2020ID126753

PATIENT
  Age: 56 Year
  Sex: Female

DRUGS (10)
  1. FERROUS GLUCONATE [Concomitant]
     Active Substance: FERROUS GLUCONATE
     Indication: PRODUCT USED FOR UNKNOWN INDICATION
     Dosage: 250 MG
     Route: 048
     Dates: start: 20200409
  2. BEDAQUILINE [Suspect]
     Active Substance: BEDAQUILINE
     Indication: TUBERCULOSIS
     Dosage: 400 MG, UNKNOWN
     Route: 048
     Dates: start: 20200221, end: 20200305
  3. ISONIAZID. [Suspect]
     Active Substance: ISONIAZID
     Indication: TUBERCULOSIS
     Dosage: 200 MG
     Route: 048
     Dates: start: 20200221, end: 20200419
  4. PYRAZINAMIDE. [Suspect]
     Active Substance: PYRAZINAMIDE
     Indication: TUBERCULOSIS
     Dosage: 1000 MG, UNKNOWN
     Route: 048
     Dates: start: 20200221, end: 20200419
  5. LINEZOLID. [Suspect]
     Active Substance: LINEZOLID
     Indication: TUBERCULOSIS
     Dosage: 600 MG
     Route: 048
     Dates: start: 20200221, end: 20200414
  6. BEDAQUILINE [Suspect]
     Active Substance: BEDAQUILINE
     Dosage: 200 UNK
     Route: 048
     Dates: start: 20200306, end: 20200419
  7. FOLIC ACID. [Concomitant]
     Active Substance: FOLIC ACID
     Indication: PRODUCT USED FOR UNKNOWN INDICATION
     Dosage: 1 MG
     Route: 048
     Dates: start: 20200409
  8. MANGANESE SULFATE. [Concomitant]
     Active Substance: MANGANESE SULFATE
     Indication: PRODUCT USED FOR UNKNOWN INDICATION
     Dosage: 0.2 MG
     Route: 048
     Dates: start: 20200409
  9. ASCORBIC ACID. [Concomitant]
     Active Substance: ASCORBIC ACID
     Indication: PRODUCT USED FOR UNKNOWN INDICATION
     Dosage: 50 MG, UNKNOWN
     Route: 048
     Dates: start: 20200409
  10. ETHAMBUTOL [Suspect]
     Active Substance: ETHAMBUTOL HYDROCHLORIDE
     Indication: TUBERCULOSIS
     Dosage: 500 MG, UNKNOWN
     Route: 048
     Dates: start: 20200221, end: 20200419

REACTIONS (14)
  - Platelet count increased [Recovered/Resolved]
  - Blood iron decreased [Unknown]
  - Condition aggravated [Not Recovered/Not Resolved]
  - Palpitations [Recovering/Resolving]
  - Hypochromic anaemia [Unknown]
  - Asthenia [Not Recovered/Not Resolved]
  - Dizziness [Recovering/Resolving]
  - Mean cell haemoglobin decreased [Unknown]
  - Nausea [Recovering/Resolving]
  - Serum ferritin increased [Unknown]
  - Iron binding capacity total decreased [Unknown]
  - Blood lactate dehydrogenase increased [Unknown]
  - Anaemia [Not Recovered/Not Resolved]
  - Pallor [Unknown]

NARRATIVE: CASE EVENT DATE: 20200314
